FAERS Safety Report 9581368 (Version 1)
Quarter: 2013Q4

REPORT INFORMATION
  Report Type: Spontaneous
  Country: FR (occurrence: FR)
  Receive Date: 20131002
  Receipt Date: 20131002
  Transmission Date: 20140711
  Serious: Yes (Hospitalization)
  Sender: FDA-Public Use
  Company Number: FR-GLAXOSMITHKLINE-B0925753A

PATIENT
  Age: 81 Year
  Sex: Female

DRUGS (10)
  1. DEROXAT [Suspect]
     Indication: DEPRESSION
     Dosage: 20MG PER DAY
     Route: 048
  2. RISPERIDONE [Suspect]
     Indication: DEPRESSION
     Dosage: 3MG PER DAY
     Route: 048
  3. DEPAMIDE [Suspect]
     Indication: DEPRESSION
     Dosage: 600MG TWICE PER DAY
     Route: 048
  4. MIANSERINE [Suspect]
     Dosage: 30MG PER DAY
     Route: 048
  5. SERESTA [Suspect]
     Indication: DEPRESSION
     Dosage: 25MG PER DAY
     Route: 048
  6. GLICLAZIDE [Concomitant]
     Route: 065
  7. KARDEGIC [Concomitant]
     Route: 065
  8. FUROSEMIDE [Concomitant]
     Route: 065
  9. CRESTOR [Concomitant]
     Route: 065
  10. LEVOTHYROX [Concomitant]
     Route: 048

REACTIONS (5)
  - Parkinsonism [Recovering/Resolving]
  - Malaise [Recovered/Resolved]
  - Fall [Recovered/Resolved]
  - Psychomotor retardation [Unknown]
  - Motor dysfunction [Unknown]
